FAERS Safety Report 13312158 (Version 1)
Quarter: 2017Q1

REPORT INFORMATION
  Report Type: Spontaneous
  Country: GB (occurrence: US)
  Receive Date: 20170309
  Receipt Date: 20170309
  Transmission Date: 20170428
  Serious: Yes (Hospitalization)
  Sender: FDA-Public Use
  Company Number: None

PATIENT
  Age: 58 Year
  Sex: Female
  Weight: 58.5 kg

DRUGS (1)
  1. DOXIL [Suspect]
     Active Substance: DOXORUBICIN HYDROCHLORIDE
     Dates: end: 20170217

REACTIONS (6)
  - Protein urine present [None]
  - Urine ketone body present [None]
  - Sepsis [None]
  - Blood urine present [None]
  - Atrial fibrillation [None]
  - Heart rate increased [None]

NARRATIVE: CASE EVENT DATE: 20170305
